FAERS Safety Report 4470888-7 (Version None)
Quarter: 2004Q4

REPORT INFORMATION
  Report Type: 
  Country: None (occurrence: None)
  Receive Date: 20041011
  Receipt Date: 20040930
  Transmission Date: 20050328
  Serious: Yes (Death, Other)
  Sender: FDA-Public Use
  Company Number: US-AMGEN-US094089

PATIENT
  Sex: Male

DRUGS (2)
  1. PROCRIT [Suspect]
     Indication: MYELODYSPLASTIC SYNDROME
     Route: 058
     Dates: start: 20030401
  2. BLOOD CELLS, PACKED HUMAN [Concomitant]

REACTIONS (3)
  - APLASIA PURE RED CELL [None]
  - DEATH [None]
  - HAEMOGLOBIN DECREASED [None]
